FAERS Safety Report 20197969 (Version 1)
Quarter: 2021Q4

REPORT INFORMATION
  Report Type: Spontaneous
  Country: US (occurrence: US)
  Receive Date: 20211217
  Receipt Date: 20211217
  Transmission Date: 20220303
  Serious: No
  Sender: FDA-Public Use
  Company Number: US-ALLERGAN-2107632US

PATIENT
  Sex: Female

DRUGS (3)
  1. PREDNISOLONE ACETATE [Suspect]
     Active Substance: PREDNISOLONE ACETATE
     Indication: Herpes zoster
     Dosage: UNK
     Route: 047
  2. unknown antiviral [Concomitant]
     Indication: Herpes zoster
     Dosage: UNK
     Dates: start: 202012
  3. ZYRTEC [Concomitant]
     Active Substance: CETIRIZINE HYDROCHLORIDE

REACTIONS (1)
  - Headache [Not Recovered/Not Resolved]
